FAERS Safety Report 5761211-6 (Version None)
Quarter: 2008Q2

REPORT INFORMATION
  Report Type: 
  Country: None (occurrence: None)
  Receive Date: 20080606
  Receipt Date: 20080530
  Transmission Date: 20081010
  Serious: Yes (Other)
  Sender: FDA-Public Use
  Company Number: DK-ASTRAZENECA-2008SE01452

PATIENT
  Age: 16999 Day
  Sex: Female
  Weight: 58 kg

DRUGS (2)
  1. SYMBICORT FORTE [Suspect]
     Indication: ASTHMA
     Dosage: TWO INHALATIONS BID
     Route: 055
     Dates: start: 20080306, end: 20080313
  2. RHINOCORT [Suspect]
     Indication: SEASONAL ALLERGY
     Route: 045

REACTIONS (7)
  - COUGH [None]
  - DISCOMFORT [None]
  - ECZEMA [None]
  - PALPITATIONS [None]
  - PHARYNGEAL OEDEMA [None]
  - PRURITUS [None]
  - THROAT IRRITATION [None]
